FAERS Safety Report 17614663 (Version 4)
Quarter: 2020Q2

REPORT INFORMATION
  Report Type: Spontaneous
  Country: DE (occurrence: DE)
  Receive Date: 20200402
  Receipt Date: 20200409
  Transmission Date: 20200713
  Serious: Yes (Other)
  Sender: FDA-Public Use
  Company Number: DE-BAUSCH-BL-2020-008786

PATIENT
  Age: 83 Year
  Sex: Female

DRUGS (10)
  1. VIDISIC [Suspect]
     Active Substance: CARBOMER
     Indication: PRODUCT USED FOR UNKNOWN INDICATION
     Dosage: IN BETWEEN AT DAY IF NEEDED
     Route: 065
     Dates: start: 2020, end: 2020
  2. CORNEREGEL [Suspect]
     Active Substance: DEXPANTHENOL
     Indication: PRODUCT USED FOR UNKNOWN INDICATION
     Dosage: STARTED USING SINCE ABOUT 14 DAYS (2X10G)
     Route: 065
     Dates: start: 202003, end: 2020
  3. DEXA EDO [Suspect]
     Active Substance: DEXAMETHASONE SODIUM PHOSPHATE
     Dosage: 4 DROPS IN 10 DAYS
     Route: 065
     Dates: start: 2020, end: 2020
  4. CORNEREGEL [Suspect]
     Active Substance: DEXPANTHENOL
     Route: 065
     Dates: start: 2020
  5. DEXA EDO [Suspect]
     Active Substance: DEXAMETHASONE SODIUM PHOSPHATE
     Dosage: 1 DROPS IN 10 DAYS
     Route: 065
     Dates: start: 2020, end: 2020
  6. DEXA EDO [Suspect]
     Active Substance: DEXAMETHASONE SODIUM PHOSPHATE
     Indication: PRODUCT USED FOR UNKNOWN INDICATION
     Dosage: 50X0.5 ML
     Route: 065
     Dates: start: 20200203, end: 2020
  7. DEXA EDO [Suspect]
     Active Substance: DEXAMETHASONE SODIUM PHOSPHATE
     Dosage: 5 DROPS IN 10 DAYS
     Route: 065
     Dates: start: 20200224, end: 202003
  8. DEXA EDO [Suspect]
     Active Substance: DEXAMETHASONE SODIUM PHOSPHATE
     Route: 065
     Dates: start: 2020
  9. DEXA EDO [Suspect]
     Active Substance: DEXAMETHASONE SODIUM PHOSPHATE
     Dosage: 5 DROPS DAILY IN 10 DAYS
     Route: 065
     Dates: start: 2020, end: 2020
  10. VIDISIC [Suspect]
     Active Substance: CARBOMER
     Dosage: STARTED USING SINCE ABOUT 1 WEEK
     Route: 065
     Dates: start: 2020

REACTIONS (8)
  - Vision blurred [Unknown]
  - Eye operation [Unknown]
  - Ocular discomfort [Unknown]
  - Ocular hyperaemia [Unknown]
  - Eye pain [Recovering/Resolving]
  - Eye irritation [Recovering/Resolving]
  - Erythema of eyelid [Unknown]
  - Eye swelling [Unknown]

NARRATIVE: CASE EVENT DATE: 2020
